FAERS Safety Report 8856883 (Version 1)
Quarter: 2012Q4

REPORT INFORMATION
  Report Type: Spontaneous
  Country: US (occurrence: None)
  Receive Date: 20121023
  Receipt Date: 20121023
  Transmission Date: 20130627
  Serious: Yes (Disabling)
  Sender: FDA-Public Use
  Company Number: None

PATIENT
  Sex: Male
  Weight: 99.79 kg

DRUGS (1)
  1. ROPINIROLE [Suspect]
     Indication: RESTLESS LEGS
     Dosage: 10/09 - 10/10
1.0 mg 1 Night Oral
     Route: 048

REACTIONS (5)
  - Gait disturbance [None]
  - Eating disorder [None]
  - Somnolence [None]
  - Speech disorder [None]
  - Sexual dysfunction [None]
